FAERS Safety Report 5477950-0 (Version None)
Quarter: 2007Q4

REPORT INFORMATION
  Report Type: 
  Country: None (occurrence: None)
  Receive Date: 20071005
  Receipt Date: 20070926
  Transmission Date: 20080405
  Serious: Yes (Hospitalization, Other)
  Sender: FDA-Public Use
  Company Number: GB-JNJFOC-20070905561

PATIENT
  Sex: Female
  Weight: 70 kg

DRUGS (12)
  1. INFLIXIMAB [Suspect]
     Indication: RHEUMATOID ARTHRITIS
     Route: 042
  2. METHOTREXATE [Concomitant]
  3. PREDNISOLONE [Concomitant]
  4. CARDURA [Concomitant]
  5. COLOFAC [Concomitant]
  6. FLUOXETINE [Concomitant]
  7. FOLIC ACID [Concomitant]
  8. SECURON [Concomitant]
  9. LEVOTHYROXINE SODIUM [Concomitant]
  10. TRITACE [Concomitant]
  11. VERAPAMIL [Concomitant]
  12. ZANIDIP [Concomitant]

REACTIONS (1)
  - VENTRICULAR TACHYCARDIA [None]
